FAERS Safety Report 13850306 (Version 1)
Quarter: 2017Q3

REPORT INFORMATION
  Report Type: Spontaneous
  Country: FR (occurrence: FR)
  Receive Date: 20170809
  Receipt Date: 20170809
  Transmission Date: 20171127
  Serious: Yes (Hospitalization)
  Sender: FDA-Public Use
  Company Number: FR-ROCHE-1971762

PATIENT
  Age: 62 Year
  Sex: Male

DRUGS (16)
  1. AVASTIN [Suspect]
     Active Substance: BEVACIZUMAB
     Dosage: CYCLE 5
     Route: 042
     Dates: start: 20121115
  2. OXALIPLATIN. [Suspect]
     Active Substance: OXALIPLATIN
     Dosage: CYCLE 3
     Route: 042
     Dates: start: 20121019
  3. FLUOROURACILE [Suspect]
     Active Substance: FLUOROURACIL
     Dosage: CYCLE 6
     Route: 042
     Dates: start: 20121129
  4. LEUCOVORIN. [Concomitant]
     Active Substance: LEUCOVORIN
     Dosage: CYCLE 5
     Route: 065
     Dates: start: 20121115
  5. AVASTIN [Suspect]
     Active Substance: BEVACIZUMAB
     Indication: COLORECTAL CANCER
     Dosage: CYCLE 1
     Route: 042
     Dates: start: 20121019
  6. FLUOROURACILE [Suspect]
     Active Substance: FLUOROURACIL
     Dosage: CYCLE 5
     Route: 042
     Dates: start: 20121115
  7. LEUCOVORIN. [Concomitant]
     Active Substance: LEUCOVORIN
     Indication: COLORECTAL CANCER
     Dosage: CYCLE 1
     Route: 065
     Dates: start: 20120921
  8. OXALIPLATIN. [Suspect]
     Active Substance: OXALIPLATIN
     Indication: COLORECTAL CANCER
     Dosage: CYCLE 1
     Route: 042
     Dates: start: 20120921
  9. FLUOROURACILE [Suspect]
     Active Substance: FLUOROURACIL
     Indication: COLORECTAL CANCER
     Dosage: CYCLE 1
     Route: 042
     Dates: start: 20120921
  10. LEUCOVORIN. [Concomitant]
     Active Substance: LEUCOVORIN
     Dosage: CYCLE 6
     Route: 065
     Dates: start: 20121129
  11. LEUCOVORIN. [Concomitant]
     Active Substance: LEUCOVORIN
     Dosage: CYCLE 7
     Route: 065
     Dates: start: 20121219
  12. AVASTIN [Suspect]
     Active Substance: BEVACIZUMAB
     Dosage: CYCLE 6
     Route: 042
     Dates: start: 20121129, end: 20121129
  13. OXALIPLATIN. [Suspect]
     Active Substance: OXALIPLATIN
     Dosage: CYCLE 5
     Route: 042
     Dates: start: 20121115, end: 20121129
  14. FLUOROURACILE [Suspect]
     Active Substance: FLUOROURACIL
     Dosage: CYCLE 3
     Route: 042
     Dates: start: 20121019
  15. FLUOROURACILE [Suspect]
     Active Substance: FLUOROURACIL
     Dosage: CYCLE 7
     Route: 042
     Dates: start: 20121219, end: 20130412
  16. LEUCOVORIN. [Concomitant]
     Active Substance: LEUCOVORIN
     Dosage: CYCLE 3
     Route: 065
     Dates: start: 20121019

REACTIONS (2)
  - Diarrhoea [Recovered/Resolved]
  - Renal failure [Recovered/Resolved]

NARRATIVE: CASE EVENT DATE: 20121214
